FAERS Safety Report 8838059 (Version 1)
Quarter: 2012Q4

REPORT INFORMATION
  Report Type: 
  Country: BE (occurrence: BE)
  Receive Date: 20121012
  Receipt Date: 20121012
  Transmission Date: 20130627
  Serious: Yes (Other)
  Sender: FDA-Public Use
  Company Number: BE-ROCHE-1142204

PATIENT
  Sex: Female

DRUGS (4)
  1. XOLAIR [Suspect]
     Indication: BRONCHOPULMONARY ASPERGILLOSIS ALLERGIC
     Dosage: 75/0.5mg/ml (Solution In Syringe)
     Route: 058
     Dates: start: 200909
  2. SERETIDE [Concomitant]
  3. LYSOMUCIL [Concomitant]
  4. AVAMIS [Concomitant]

REACTIONS (1)
  - Nocardiosis [Recovered/Resolved]
